FAERS Safety Report 5747309-7 (Version None)
Quarter: 2008Q2

REPORT INFORMATION
  Report Type: 
  Country: None (occurrence: None)
  Receive Date: 20080523
  Receipt Date: 20080512
  Transmission Date: 20081010
  Serious: Yes (Other)
  Sender: FDA-Public Use
  Company Number: US-JNJFOC-20080503102

PATIENT
  Sex: Female
  Weight: 52.62 kg

DRUGS (10)
  1. FENTANYL TRANSDERMAL SYSTEM [Suspect]
     Route: 062
  2. FENTANYL TRANSDERMAL SYSTEM [Suspect]
     Indication: PAIN
     Route: 062
  3. DURAGESIC-100 [Suspect]
     Route: 062
  4. DURAGESIC-100 [Suspect]
     Indication: PAIN
     Route: 062
  5. LEVOTHYROXINE SODIUM [Concomitant]
     Indication: THYROID DISORDER
     Route: 048
  6. VITAMIN B-12 [Concomitant]
     Dosage: 1 CC
     Route: 050
  7. VESICARE [Concomitant]
     Indication: BLADDER DISORDER
     Route: 048
  8. MULTI-VITAMIN [Concomitant]
     Route: 048
  9. VITAMIN D [Concomitant]
     Route: 048
  10. CALCIUM [Concomitant]
     Route: 048

REACTIONS (8)
  - AMNESIA [None]
  - ANOREXIA [None]
  - BREAKTHROUGH PAIN [None]
  - CONSTIPATION [None]
  - FATIGUE [None]
  - HYPERTENSION [None]
  - INCORRECT DRUG ADMINISTRATION DURATION [None]
  - WEIGHT DECREASED [None]
